FAERS Safety Report 25709532 (Version 5)
Quarter: 2025Q3

REPORT INFORMATION
  Report Type: Spontaneous
  Country: EU (occurrence: EU)
  Receive Date: 20250821
  Receipt Date: 20250929
  Transmission Date: 20251021
  Serious: Yes (Hospitalization, Disabling, Other)
  Sender: MYLAN
  Company Number: EU-MYLANLABS-2025M1070511

PATIENT
  Age: 44 Year
  Sex: Female
  Weight: 78 kg

DRUGS (2)
  1. CLOZARIL [Suspect]
     Active Substance: CLOZAPINE
     Indication: Schizophrenia
     Dosage: 300 MILLIGRAM, QD (DAILY)
     Dates: start: 20110225, end: 20250819
  2. CLOZARIL [Suspect]
     Active Substance: CLOZAPINE

REACTIONS (14)
  - Hospitalisation [Unknown]
  - Schizophrenia [Unknown]
  - Invasive ductal breast carcinoma [Unknown]
  - Mental impairment [Unknown]
  - Withdrawal catatonia [Unknown]
  - Neutropenic sepsis [Unknown]
  - Leukopenia [Recovered/Resolved]
  - Neutropenia [Recovered/Resolved]
  - Thrombocytopenia [Not Recovered/Not Resolved]
  - Delusion [Unknown]
  - Haemoglobin decreased [Not Recovered/Not Resolved]
  - Haematocrit decreased [Unknown]
  - Eosinophil count decreased [Not Recovered/Not Resolved]
  - Off label use [Unknown]

NARRATIVE: CASE EVENT DATE: 20250721
